FAERS Safety Report 15580725 (Version 1)
Quarter: 2018Q4

REPORT INFORMATION
  Report Type: Spontaneous
  Country: US (occurrence: US)
  Receive Date: 20181103
  Receipt Date: 20181103
  Transmission Date: 20190205
  Serious: Yes (Life-Threatening, Other)
  Sender: FDA-Public Use
  Company Number: None

PATIENT
  Age: 13 Year
  Sex: Male
  Weight: 60.75 kg

DRUGS (1)
  1. EPINEPHRINE INJECTION, USP, AUTO-INJECTOR (0.3 MG) [Suspect]
     Active Substance: EPINEPHRINE
     Indication: FOOD ALLERGY
     Dosage: ?          QUANTITY:1 INJECTION(S);OTHER ROUTE:AUTO INJECTOR?

REACTIONS (2)
  - Device failure [None]
  - Product complaint [None]

NARRATIVE: CASE EVENT DATE: 20180930
